FAERS Safety Report 18488689 (Version 1)
Quarter: 2020Q4

REPORT INFORMATION
  Report Type: Spontaneous
  Country: US (occurrence: US)
  Receive Date: 20201111
  Receipt Date: 20201111
  Transmission Date: 20210114
  Serious: Yes (Other)
  Sender: FDA-Public Use
  Company Number: US-SUN PHARMACEUTICAL INDUSTRIES LTD-2020R1-267072

PATIENT
  Age: 73 Year
  Sex: Female

DRUGS (1)
  1. ERLOTINIB [Suspect]
     Active Substance: ERLOTINIB
     Indication: NON-SMALL CELL LUNG CANCER METASTATIC
     Dosage: UNK
     Route: 065

REACTIONS (8)
  - Naevoid melanoma [Unknown]
  - Paronychia [Unknown]
  - Hypersensitivity vasculitis [Recovered/Resolved]
  - Pruritus [Unknown]
  - Melanocytic naevus [Unknown]
  - Dermatitis acneiform [Unknown]
  - Alopecia [Unknown]
  - Xerosis [Unknown]
